FAERS Safety Report 6569083-7 (Version None)
Quarter: 2010Q1

REPORT INFORMATION
  Report Type: 
  Country: None (occurrence: None)
  Receive Date: 20100203
  Receipt Date: 20100125
  Transmission Date: 20100710
  Serious: Yes (Life-Threatening, Hospitalization)
  Sender: FDA-Public Use
  Company Number: CH-PFIZER INC-2009312269

PATIENT
  Sex: Female
  Weight: 75 kg

DRUGS (2)
  1. CHAMPIX [Suspect]
     Indication: SMOKING CESSATION THERAPY
     Dosage: 0.5 MG, 1X/DAY
     Route: 048
     Dates: start: 20091130, end: 20091206
  2. HYGROTON [Suspect]
     Dosage: UNK
     Route: 042
     Dates: end: 20091213

REACTIONS (5)
  - ALKALOSIS [None]
  - CONSTIPATION [None]
  - HYPOKALAEMIA [None]
  - NAUSEA [None]
  - RHABDOMYOLYSIS [None]
